FAERS Safety Report 23795553 (Version 2)
Quarter: 2024Q2

REPORT INFORMATION
  Report Type: Spontaneous
  Country: US (occurrence: US)
  Receive Date: 20240429
  Receipt Date: 20240503
  Transmission Date: 20240716
  Serious: No
  Sender: FDA-Public Use
  Company Number: US-PFIZER INC-202400095793

PATIENT
  Age: 41 Year
  Sex: Female

DRUGS (8)
  1. XELJANZ XR [Suspect]
     Active Substance: TOFACITINIB CITRATE
     Indication: Rheumatoid arthritis
     Dosage: 11 MG, 1X/DAY
     Dates: start: 202204
  2. XELJANZ XR [Suspect]
     Active Substance: TOFACITINIB CITRATE
     Indication: Ankylosing spondylitis
  3. SULFASALAZINE [Concomitant]
     Active Substance: SULFASALAZINE
  4. MELOXICAM [Concomitant]
     Active Substance: MELOXICAM
  5. OMEPRAZOLE [Concomitant]
     Active Substance: OMEPRAZOLE
  6. ALBUTEROL SULFATE [Concomitant]
     Active Substance: ALBUTEROL SULFATE
  7. LEXAPRO [Concomitant]
     Active Substance: ESCITALOPRAM OXALATE
  8. MIRENA [Concomitant]
     Active Substance: LEVONORGESTREL

REACTIONS (1)
  - Product dose omission in error [Recovered/Resolved]
